FAERS Safety Report 21252687 (Version 1)
Quarter: 2022Q3

REPORT INFORMATION
  Report Type: Report from Study
  Country: BR (occurrence: BR)
  Receive Date: 20220825
  Receipt Date: 20220825
  Transmission Date: 20221027
  Serious: Yes (Other)
  Sender: FDA-Public Use
  Company Number: BR-JNJFOC-20220839317

PATIENT
  Age: 62 Year
  Sex: Female

DRUGS (5)
  1. SIMPONI [Suspect]
     Active Substance: GOLIMUMAB
     Indication: Rheumatoid arthritis
     Route: 058
     Dates: start: 20220401
  2. SIMPONI [Suspect]
     Active Substance: GOLIMUMAB
  3. GLIFAGE [Concomitant]
     Active Substance: METFORMIN HYDROCHLORIDE
  4. GLICLAZIDE [Concomitant]
     Active Substance: GLICLAZIDE
  5. HYDROCHLOROTHIAZIDE [Concomitant]
     Active Substance: HYDROCHLOROTHIAZIDE

REACTIONS (4)
  - Hysterectomy [Not Recovered/Not Resolved]
  - Blood glucose increased [Unknown]
  - Inflammation [Not Recovered/Not Resolved]
  - Abdominal distension [Unknown]

NARRATIVE: CASE EVENT DATE: 20220808
